FAERS Safety Report 4809190-X (Version None)
Quarter: 2005Q4

REPORT INFORMATION
  Report Type: 
  Country: None (occurrence: None)
  Receive Date: 20051021
  Receipt Date: 20010906
  Transmission Date: 20060501
  Serious: No
  Sender: FDA-Public Use
  Company Number: GBS010909421

PATIENT
  Age: 53 Year
  Sex: Female

DRUGS (4)
  1. ZYPREXA [Suspect]
     Dosage: 10 MG/1 AT BEDTIME
     Dates: end: 20010828
  2. THYROXINE [Concomitant]
  3. AMITRIPTYLINE HCL [Concomitant]
  4. BENDROFLUAZIDE [Concomitant]

REACTIONS (1)
  - CONTUSION [None]
